FAERS Safety Report 23492516 (Version 1)
Quarter: 2024Q1

REPORT INFORMATION
  Report Type: Spontaneous
  Country: ES (occurrence: ES)
  Receive Date: 20240207
  Receipt Date: 20240207
  Transmission Date: 20240410
  Serious: Yes (Life-Threatening, Other)
  Sender: FDA-Public Use
  Company Number: None

PATIENT
  Age: 71 Year
  Sex: Male
  Weight: 83 kg

DRUGS (11)
  1. IFOSFAMIDE [Suspect]
     Active Substance: IFOSFAMIDE
     Indication: Angiocentric lymphoma
     Dosage: PLANNED 2030 MG, NOT COMPLETED, 1 VIAL
     Route: 042
     Dates: start: 20231219, end: 20231220
  2. MESNA [Suspect]
     Active Substance: MESNA
     Indication: Prophylaxis
     Dosage: 630 MG 3 DOSES AFTER IFOSFAMIDE, INFUSION 10 AMPOULES OF 10 ML
     Route: 042
     Dates: start: 20231219, end: 20231221
  3. LEUCOVORIN CALCIUM [Concomitant]
     Active Substance: LEUCOVORIN CALCIUM
     Indication: Prophylaxis
     Dosage: 60 MG, EVERY 6 HOURS AFTER METHOTREXATE INFUSION (NORMON, EFG) 1 VIAL
     Route: 042
     Dates: start: 20231219, end: 20231221
  4. DEXAMETHASONE [Concomitant]
     Active Substance: DEXAMETHASONE
     Indication: Angiocentric lymphoma
     Dosage: 40 MG, ONCE A DAY, THREE DAYS IN A ROW, EFG, 100 AMPOULES OF 1 ML, KERN PHARMA
     Route: 042
     Dates: start: 20231219, end: 20231221
  5. ALLOPURINOL [Concomitant]
     Active Substance: ALLOPURINOL
     Indication: Prophylaxis
     Dosage: 300 MG, ONE TABLET DAILY, EFG, 30 TABLETS
     Route: 048
     Dates: start: 20231201
  6. METHOTREXATE [Concomitant]
     Active Substance: METHOTREXATE
     Indication: Angiocentric lymphoma
     Dosage: 7000 MG SINGLE DOSE, TOTAL 1 VIAL OF 20 ML
     Route: 042
     Dates: start: 20231218, end: 20231218
  7. ETOPOSIDE [Concomitant]
     Active Substance: ETOPOSIDE
     Indication: Angiocentric lymphoma
     Dosage: 200 MG FOR 3 DAYS, 1 VIAL OF 5 ML
     Route: 042
     Dates: start: 20231219, end: 20231221
  8. SULFAMETHOXAZOLE\TRIMETHOPRIM [Concomitant]
     Active Substance: SULFAMETHOXAZOLE\TRIMETHOPRIM
     Indication: Antibiotic prophylaxis
     Dosage: 6 FOR EVERY 1 WK, 1 TABLET EVERY 12 HOURS THREE DAYS A WEEK, (STRENGTH: 160 MG/800 MG, 50 TABLETS)
     Route: 048
     Dates: start: 20231201
  9. ACYCLOVIR [Concomitant]
     Active Substance: ACYCLOVIR
     Indication: Antiviral prophylaxis
     Dosage: 800 MG, 1 TABLET DAILY
     Route: 048
     Dates: start: 20231201
  10. FAMOTIDINE [Concomitant]
     Active Substance: FAMOTIDINE
     Indication: Prophylaxis
     Dosage: 40 MG, 1 TABLET DAILY (EFG, 28 TABLETS, ARISTO)
     Route: 048
     Dates: start: 20231218
  11. MOVICOL [Concomitant]
     Active Substance: POLYETHYLENE GLYCOL 3350\POTASSIUM CHLORIDE\SODIUM BICARBONATE\SODIUM CHLORIDE
     Indication: Constipation
     Dosage: 13.8 G, 1 SACHET EVERY 12 HOURS, ENVELOPES, 10 SACHETS
     Route: 048
     Dates: start: 20231218

REACTIONS (1)
  - Acute coronary syndrome [Recovered/Resolved]

NARRATIVE: CASE EVENT DATE: 20231220
